FAERS Safety Report 4753715-X (Version None)
Quarter: 2005Q3

REPORT INFORMATION
  Report Type: 
  Country: None (occurrence: None)
  Receive Date: 20050826
  Receipt Date: 20031104
  Transmission Date: 20060218
  Serious: Yes (Hospitalization, Disabling)
  Sender: FDA-Public Use
  Company Number: 2003UW14438

PATIENT
  Age: 52 Year
  Sex: Male
  Weight: 81.8 kg

DRUGS (5)
  1. ZESTRIL [Suspect]
     Indication: CARDIAC DISORDER
     Route: 048
     Dates: start: 20030126, end: 20030210
  2. ZESTRIL [Interacting]
     Route: 048
     Dates: start: 20030210, end: 20030226
  3. VASOTEC RPD [Interacting]
     Indication: HYPERTENSION
     Route: 048
     Dates: start: 20021116, end: 20030224
  4. ESKALITH [Interacting]
     Dates: start: 19901001
  5. VERAPAMIL [Concomitant]
     Dates: end: 20021121

REACTIONS (23)
  - ASTHENIA [None]
  - CHEST PAIN [None]
  - CHOREA [None]
  - COORDINATION ABNORMAL [None]
  - CORONARY ARTERY OCCLUSION [None]
  - DRUG INTERACTION [None]
  - DRUG LEVEL ABOVE THERAPEUTIC [None]
  - DRUG TOXICITY [None]
  - DYSPNOEA [None]
  - GAIT DISTURBANCE [None]
  - HEADACHE [None]
  - HYPERHIDROSIS [None]
  - INFLUENZA LIKE ILLNESS [None]
  - MALAISE [None]
  - MEDICATION ERROR [None]
  - MEMORY IMPAIRMENT [None]
  - MOTOR DYSFUNCTION [None]
  - MUSCULAR WEAKNESS [None]
  - NAUSEA [None]
  - NERVOUS SYSTEM DISORDER [None]
  - PAIN [None]
  - THERAPEUTIC AGENT TOXICITY [None]
  - TREMOR [None]
